FAERS Safety Report 6346120-6 (Version None)
Quarter: 2009Q3

REPORT INFORMATION
  Report Type: 
  Country: None (occurrence: None)
  Receive Date: 20090909
  Receipt Date: 20090831
  Transmission Date: 20100115
  Serious: Yes (Hospitalization)
  Sender: FDA-Public Use
  Company Number: JP-EISAI INC.-E3810-03055-SPO-JP

PATIENT
  Sex: Female
  Weight: 39 kg

DRUGS (20)
  1. PARIET (RABEPRAZOLE) [Suspect]
     Indication: REFLUX OESOPHAGITIS
     Route: 048
     Dates: start: 20090630, end: 20090723
  2. GASMOTIN [Concomitant]
     Indication: REFLUX OESOPHAGITIS
     Route: 048
  3. POLAPREZINC [Concomitant]
     Indication: REFLUX OESOPHAGITIS
     Route: 048
  4. LAXOBERON [Concomitant]
     Indication: CONSTIPATION
     Route: 048
  5. MAGNESIUM OXIDE [Concomitant]
     Indication: CONSTIPATION
     Route: 048
  6. FUROSEMIDE [Concomitant]
     Indication: CARDIAC FAILURE CHRONIC
     Route: 048
  7. FUROSEMIDE [Concomitant]
     Indication: AORTIC VALVE STENOSIS
  8. ALDACTONE [Concomitant]
     Indication: CARDIAC FAILURE CHRONIC
     Route: 048
  9. ALDACTONE [Concomitant]
     Indication: AORTIC VALVE STENOSIS
  10. ASPIRIN [Concomitant]
     Indication: CEREBRAL INFARCTION
     Route: 048
  11. DEPAS [Concomitant]
     Indication: INSOMNIA
     Route: 048
  12. PREDNISOLONE [Concomitant]
     Route: 048
  13. ZYRTEC [Concomitant]
     Route: 048
  14. ALLOPURINOL [Concomitant]
     Route: 048
  15. LIPITOR [Concomitant]
     Route: 048
  16. MEPTIN AIR [Concomitant]
     Route: 025
  17. PULMICORT-100 [Concomitant]
     Route: 025
  18. HEPARIN [Concomitant]
  19. ARTIST [Concomitant]
     Route: 048
  20. DIART [Concomitant]
     Route: 048
     Dates: start: 20090711, end: 20090722

REACTIONS (3)
  - APLASTIC ANAEMIA [None]
  - GRANULOCYTOPENIA [None]
  - PANCYTOPENIA [None]
